FAERS Safety Report 8433853 (Version 5)
Quarter: 2014Q2

REPORT INFORMATION
  Report Type: Report from Study
  Country: AU (occurrence: AU)
  Receive Date: 20120229
  Receipt Date: 20140421
  Transmission Date: 20141212
  Serious: Yes (Life-Threatening, Hospitalization, Other)
  Sender: FDA-Public Use
  Company Number: PHHO2012AU002942

PATIENT
  Age: 53 Year
  Sex: Male
  Weight: 109 kg

DRUGS (4)
  1. AMN107 [Suspect]
     Indication: CHRONIC MYELOID LEUKAEMIA
     Dosage: 300 MG, BID
     Route: 048
     Dates: start: 20110428, end: 20120216
  2. ATORVASTATIN [Concomitant]
     Indication: HYPERLIPIDAEMIA
     Dosage: 20 MG, QD
     Route: 048
     Dates: start: 20120210
  3. ISOSORBIDE MONONITRATE [Concomitant]
     Dosage: 60 MG, QD
  4. ASPIRIN [Concomitant]
     Dosage: 100 MG, QD

REACTIONS (1)
  - Coronary artery disease [Recovered/Resolved]
